FAERS Safety Report 21335841 (Version 2)
Quarter: 2022Q4

REPORT INFORMATION
  Report Type: Spontaneous
  Country: US (occurrence: US)
  Receive Date: 20220915
  Receipt Date: 20221109
  Transmission Date: 20230112
  Serious: No
  Sender: FDA-Public Use
  Company Number: US-CELGENE-USA-20210900215

PATIENT
  Age: 78 Year
  Sex: Female
  Weight: 57.61 kg

DRUGS (5)
  1. REVLIMID [Suspect]
     Active Substance: LENALIDOMIDE
     Indication: Plasma cell myeloma
     Dosage: DAILY FOR 21DAYS
     Route: 048
  2. REVLIMID [Suspect]
     Active Substance: LENALIDOMIDE
     Route: 048
  3. REVLIMID [Suspect]
     Active Substance: LENALIDOMIDE
     Route: 048
  4. REVLIMID [Suspect]
     Active Substance: LENALIDOMIDE
     Route: 048
  5. ZOMETA [Suspect]
     Active Substance: ZOLEDRONIC ACID
     Indication: Product used for unknown indication
     Route: 065

REACTIONS (3)
  - Weight increased [Unknown]
  - Diarrhoea [Not Recovered/Not Resolved]
  - Off label use [Unknown]
